FAERS Safety Report 7893618-5 (Version None)
Quarter: 2011Q4

REPORT INFORMATION
  Report Type: 
  Country: None (occurrence: None)
  Receive Date: 20111104
  Receipt Date: 20111026
  Transmission Date: 20120403
  Serious: Yes (Hospitalization)
  Sender: FDA-Public Use
  Company Number: JP-GLAXOSMITHKLINE-B0699051A

PATIENT
  Sex: Female

DRUGS (3)
  1. CONIEL [Concomitant]
     Route: 048
     Dates: start: 20110203, end: 20110206
  2. ACYCLOVIR [Suspect]
     Indication: HERPES ZOSTER
     Dosage: 2IUAX PER DAY
     Route: 065
     Dates: start: 20110203, end: 20110206
  3. VALTREX [Suspect]
     Indication: HERPES ZOSTER
     Dosage: 3000MG PER DAY
     Route: 048
     Dates: start: 20110203, end: 20110206

REACTIONS (7)
  - COORDINATION ABNORMAL [None]
  - ENCEPHALOPATHY [None]
  - ALTERED STATE OF CONSCIOUSNESS [None]
  - RENAL IMPAIRMENT [None]
  - URINARY RETENTION [None]
  - RENAL FAILURE [None]
  - MALAISE [None]
